FAERS Safety Report 5096658-7 (Version None)
Quarter: 2006Q3

REPORT INFORMATION
  Report Type: 
  Country: None (occurrence: None)
  Receive Date: 20060905
  Receipt Date: 20060821
  Transmission Date: 20061208
  Serious: Yes (Hospitalization)
  Sender: FDA-Public Use
  Company Number: JP-MERCK-0608USA05464

PATIENT
  Age: 58 Year
  Sex: Female

DRUGS (2)
  1. SINGULAIR [Suspect]
     Indication: LARYNGOPHARYNGITIS
     Route: 048
     Dates: start: 20060804, end: 20060804
  2. CLARITHROMYCIN [Concomitant]
     Route: 048
     Dates: start: 20060804, end: 20060804

REACTIONS (4)
  - ALLERGIC GRANULOMATOUS ANGIITIS [None]
  - CHILLS [None]
  - INFLAMMATION [None]
  - PYREXIA [None]
